FAERS Safety Report 4652515-9 (Version None)
Quarter: 2005Q2

REPORT INFORMATION
  Report Type: 
  Country: None (occurrence: None)
  Receive Date: 20050502
  Receipt Date: 20050415
  Transmission Date: 20051028
  Serious: Yes (Hospitalization)
  Sender: FDA-Public Use
  Company Number: DSA_26208_2005

PATIENT
  Age: 77 Year
  Sex: Male

DRUGS (12)
  1. MONO-TILDIEM [Suspect]
     Dosage: 200 MG ONCE PO
     Route: 048
     Dates: start: 20050311, end: 20050311
  2. EQUANIL [Suspect]
     Dosage: 800 MG ONCE PO
     Route: 048
     Dates: start: 20050311, end: 20050311
  3. HALDOL [Suspect]
     Dosage: 6 DROPPEFUL ONCE PO
     Route: 048
     Dates: start: 20050311, end: 20050311
  4. ALCOHOL [Suspect]
     Dosage: DF ONCE PO
     Route: 048
     Dates: start: 20050311, end: 20050311
  5. MONO-TILDIEM [Suspect]
     Indication: ANGINA PECTORIS
     Dosage: DF PO
     Route: 048
     Dates: end: 20050310
  6. MONO-TILDIEM [Suspect]
     Indication: HYPERTENSION
     Dosage: DF PO
     Route: 048
     Dates: end: 20050310
  7. AMARYL [Suspect]
     Indication: DIABETES MELLITUS
     Dosage: 4 MG PO
     Route: 047
  8. METFORMIN [Suspect]
     Indication: DIABETES MELLITUS
     Dosage: DF
  9. LODALES [Suspect]
     Indication: CARDIOVASCULAR DISORDER
     Dosage: 20 MG PO
     Route: 048
  10. FLUOXETINE [Suspect]
     Indication: DEPRESSION
     Dosage: 20 MG PO
     Route: 048
  11. MIANSERIN [Suspect]
     Indication: DEPRESSION
     Dosage: DF PO
     Route: 048
  12. IMOVANE [Concomitant]

REACTIONS (7)
  - AGITATION [None]
  - HAEMATEMESIS [None]
  - HYPERGLYCAEMIA [None]
  - INTENTIONAL MISUSE [None]
  - MULTIPLE DRUG OVERDOSE [None]
  - SOMNOLENCE [None]
  - SUICIDE ATTEMPT [None]
